FAERS Safety Report 19408369 (Version 1)
Quarter: 2021Q2

REPORT INFORMATION
  Report Type: Report from Study
  Country: US (occurrence: US)
  Receive Date: 20210612
  Receipt Date: 20210612
  Transmission Date: 20210717
  Serious: No
  Sender: FDA-Public Use
  Company Number: NVSC2021US125212

PATIENT
  Age: 36 Year

DRUGS (1)
  1. COSENTYX [Suspect]
     Active Substance: SECUKINUMAB
     Indication: AXIAL SPONDYLOARTHRITIS
     Dosage: 150 MG (Q WEEK FOR FIVE WEEKS AND Q FOUR WEEKS)
     Route: 058
     Dates: start: 20210223

REACTIONS (2)
  - Arthralgia [Unknown]
  - Neuralgia [Recovering/Resolving]

NARRATIVE: CASE EVENT DATE: 20210312
